FAERS Safety Report 9276634 (Version 2)
Quarter: 2013Q2

REPORT INFORMATION
  Report Type: Spontaneous
  Country: PL (occurrence: PL)
  Receive Date: 20130507
  Receipt Date: 20130521
  Transmission Date: 20140414
  Serious: Yes (Hospitalization, Other)
  Sender: FDA-Public Use
  Company Number: PHHY2013PL043392

PATIENT
  Age: 49 Year
  Sex: Male

DRUGS (5)
  1. DOXEPIN [Suspect]
  2. LORAFEN [Suspect]
     Indication: INSOMNIA
     Dosage: 50 DF, UNK
  3. LUMINAL [Suspect]
     Dosage: 19 DF, UNK
  4. VALIUM [Suspect]
  5. TRAMAL [Suspect]
     Indication: SPINAL PAIN

REACTIONS (16)
  - Pupils unequal [Recovered/Resolved]
  - Tongue disorder [Recovered/Resolved]
  - Bronchial secretion retention [Recovered/Resolved]
  - Suicidal ideation [Unknown]
  - Coma [Recovered/Resolved]
  - Respiratory failure [Recovered/Resolved]
  - Respiratory acidosis [Recovered/Resolved]
  - Pharyngitis [Recovered/Resolved]
  - Communication disorder [Recovered/Resolved]
  - Speech disorder [Recovered/Resolved]
  - Vertebral artery hypoplasia [Recovered/Resolved]
  - Sinus tachycardia [Recovered/Resolved]
  - Agitation [Recovered/Resolved]
  - Restlessness [Recovered/Resolved]
  - Leukocytosis [Recovered/Resolved]
  - Intentional overdose [Unknown]
